FAERS Safety Report 9929267 (Version 3)
Quarter: 2014Q2

REPORT INFORMATION
  Report Type: Spontaneous
  Country: US (occurrence: US)
  Receive Date: 20140227
  Receipt Date: 20140521
  Transmission Date: 20141212
  Serious: Yes (Other)
  Sender: FDA-Public Use
  Company Number: US-SA-2014SA019510

PATIENT
  Age: 66 Year
  Sex: Female

DRUGS (8)
  1. AUBAGIO [Suspect]
     Indication: MULTIPLE SCLEROSIS RELAPSE
     Route: 048
     Dates: start: 20130809
  2. AUBAGIO [Suspect]
     Indication: MULTIPLE SCLEROSIS RELAPSE
     Route: 048
     Dates: start: 20140114
  3. ZOLPIDEM [Concomitant]
     Indication: INSOMNIA
     Route: 065
  4. HYDROCODONE [Concomitant]
     Indication: BACK PAIN
     Dosage: 5/500 DAILY DOSE
     Route: 065
  5. HYDROCODONE [Concomitant]
     Indication: INTERVERTEBRAL DISC DISORDER
     Dosage: 5/500 DAILY DOSE
     Route: 065
  6. HYDROCHLOROTHIAZIDE WITH TRIAMTERENE [Concomitant]
     Indication: HYPERTENSION
     Dosage: DOSE:1 UNIT(S)
     Route: 065
  7. ESTRADIOL [Concomitant]
     Indication: HORMONE REPLACEMENT THERAPY
     Dosage: TRANS PATCH WEEKLY
  8. AMOXICILLIN [Concomitant]
     Indication: SINUSITIS

REACTIONS (3)
  - Clostridium difficile infection [Recovered/Resolved]
  - Nausea [Recovered/Resolved]
  - Diarrhoea [Recovered/Resolved]
